FAERS Safety Report 5672848-7 (Version None)
Quarter: 2008Q1

REPORT INFORMATION
  Report Type: 
  Country: None (occurrence: None)
  Receive Date: 20080319
  Receipt Date: 20080313
  Transmission Date: 20080703
  Serious: Yes (Hospitalization, Other)
  Sender: FDA-Public Use
  Company Number: PHHY2008JP02726

PATIENT
  Age: 24 Year
  Sex: Female

DRUGS (3)
  1. SANOREX [Suspect]
     Indication: OBESITY
     Dosage: OPTIMAL DOSE
  2. SANOREX [Suspect]
     Dosage: 6 TIMES THAT OF OPTIMAL DOSE
  3. SANOREX [Suspect]
     Dosage: 18 TABLETS DAILY

REACTIONS (8)
  - ABNORMAL BEHAVIOUR [None]
  - DELUSION [None]
  - DRUG ABUSE [None]
  - DRUG DEPENDENCE [None]
  - HALLUCINATION [None]
  - HALLUCINATION, AUDITORY [None]
  - OVERDOSE [None]
  - PERSECUTORY DELUSION [None]
